FAERS Safety Report 24428400 (Version 2)
Quarter: 2024Q4

REPORT INFORMATION
  Report Type: Report from Study
  Country: US (occurrence: US)
  Receive Date: 20241011
  Receipt Date: 20241015
  Transmission Date: 20250115
  Serious: No
  Sender: ROCHE
  Company Number: US-ROCHE-10000104357

PATIENT
  Age: 51 Year
  Sex: Female
  Weight: 84.36 kg

DRUGS (6)
  1. EVRYSDI [Suspect]
     Active Substance: RISDIPLAM
     Indication: Spinal muscular atrophy
     Route: 065
  2. OCREVUS [Suspect]
     Active Substance: OCRELIZUMAB
     Indication: Relapsing-remitting multiple sclerosis
     Route: 065
     Dates: start: 201702
  3. FLONASE [Concomitant]
     Active Substance: FLUTICASONE PROPIONATE
  4. MIRENA [Concomitant]
     Active Substance: LEVONORGESTREL
  5. VITAMIN B12 [Concomitant]
     Active Substance: CYANOCOBALAMIN
  6. OMEPRAZOLE [Concomitant]
     Active Substance: OMEPRAZOLE

REACTIONS (7)
  - COVID-19 [Recovered/Resolved with Sequelae]
  - Pneumonia [Recovering/Resolving]
  - Carcinoma in situ [Recovered/Resolved]
  - Off label use [Unknown]
  - Blood calcium decreased [Unknown]
  - Vitamin D decreased [Unknown]
  - Asthenia [Unknown]

NARRATIVE: CASE EVENT DATE: 20211201
